FAERS Safety Report 8828393 (Version 1)
Quarter: 2012Q4

REPORT INFORMATION
  Report Type: 
  Country: US (occurrence: US)
  Receive Date: 20121005
  Receipt Date: 20121005
  Transmission Date: 20130627
  Serious: Yes (Other)
  Sender: FDA-Public Use
  Company Number: US-ROCHE-784721

PATIENT
  Sex: Male

DRUGS (1)
  1. ACCUTANE [Suspect]
     Indication: PRODUCT USED FOR UNKNOWN INDICATION
     Route: 065
     Dates: start: 198706, end: 198712

REACTIONS (5)
  - Inflammatory bowel disease [Unknown]
  - Crohn^s disease [Unknown]
  - Anal fissure [Unknown]
  - Enterocolonic fistula [Unknown]
  - Large intestine polyp [Unknown]
